FAERS Safety Report 6171080-0 (Version None)
Quarter: 2009Q2

REPORT INFORMATION
  Report Type: 
  Country: None (occurrence: None)
  Receive Date: 20090429
  Receipt Date: 20090417
  Transmission Date: 20091009
  Serious: Yes (Other)
  Sender: FDA-Public Use
  Company Number: PHHY2009DE14925

PATIENT
  Age: 25 Year
  Sex: Female

DRUGS (4)
  1. SANDIMMUNE [Suspect]
     Indication: HEART TRANSPLANT
     Dosage: 200MG/DAY
     Route: 048
     Dates: end: 20090401
  2. SANDIMMUNE [Interacting]
     Dosage: 240MG/DAY
     Dates: start: 20090401
  3. ASPIRIN PLUS C [Interacting]
     Indication: HEADACHE
     Dosage: 400MG
     Dates: start: 20090401, end: 20090401
  4. CERTICAN [Concomitant]
     Indication: HEART TRANSPLANT
     Route: 048

REACTIONS (4)
  - ANGINA PECTORIS [None]
  - DRUG INTERACTION [None]
  - DRUG LEVEL DECREASED [None]
  - HEADACHE [None]
